FAERS Safety Report 7265394-0 (Version None)
Quarter: 2011Q1

REPORT INFORMATION
  Report Type: 
  Country: None (occurrence: None)
  Receive Date: 20110131
  Receipt Date: 20110124
  Transmission Date: 20110831
  Serious: Yes (Death, Other)
  Sender: FDA-Public Use
  Company Number: DE-ROCHE-755016

PATIENT

DRUGS (3)
  1. INTERFERON ALFA-2A [Suspect]
     Indication: RECTAL CANCER
     Dosage: DOSE: 6X10E6 IU
     Route: 058
  2. FLUOROURACIL [Suspect]
     Indication: RECTAL CANCER
     Dosage: LOADING DOSE, FOR 60-120 MIN ON DAYS 1-5.  FORM: INFUSION
     Route: 065
  3. LEVAMISOL [Concomitant]
     Indication: RECTAL CANCER
     Dosage: 3 TIMES ON DAYS 1-3, EVERY 2 WEEKS.
     Route: 048

REACTIONS (9)
  - NAUSEA [None]
  - DEHYDRATION [None]
  - RENAL FAILURE [None]
  - SKIN TOXICITY [None]
  - NEUROTOXICITY [None]
  - PYREXIA [None]
  - VOMITING [None]
  - DIARRHOEA [None]
  - HAEMATOTOXICITY [None]
